FAERS Safety Report 8375966-8 (Version None)
Quarter: 2012Q2

REPORT INFORMATION
  Report Type: 
  Country: None (occurrence: None)
  Receive Date: 20120522
  Receipt Date: 20120514
  Transmission Date: 20120825
  Serious: Yes (Hospitalization, Other)
  Sender: FDA-Public Use
  Company Number: CA-SANOFI-AVENTIS-2012SA027281

PATIENT
  Age: 62 Year
  Sex: Female

DRUGS (11)
  1. ANGIOTENSIN II ANTAGONISTS [Concomitant]
  2. ANTIHYPERTENSIVES [Concomitant]
  3. ORAL ANTIDIABETICS [Suspect]
     Dates: start: 20101027
  4. PLAVIX [Suspect]
  5. PLACEBO [Suspect]
     Dates: start: 20101027
  6. ASPIRIN [Suspect]
  7. SERUMLIPIDREDUCING AGENTS [Concomitant]
  8. NOVORAPID [Suspect]
  9. METFORMIN HCL [Suspect]
  10. LANTUS [Suspect]
  11. HEPARIN [Concomitant]
     Dates: start: 20101213, end: 20101213

REACTIONS (3)
  - GENERAL PHYSICAL HEALTH DETERIORATION [None]
  - GASTROINTESTINAL ANGIODYSPLASIA [None]
  - HEPATIC NEOPLASM [None]
